FAERS Safety Report 5766458-0 (Version None)
Quarter: 2008Q2

REPORT INFORMATION
  Report Type: 
  Country: None (occurrence: None)
  Receive Date: 20080606
  Receipt Date: 20080526
  Transmission Date: 20081010
  Serious: Yes (Life-Threatening)
  Sender: FDA-Public Use
  Company Number: 19439

PATIENT
  Age: 72 Year
  Sex: Female

DRUGS (1)
  1. PACLITAXEL [Suspect]

REACTIONS (5)
  - BRADYCARDIA [None]
  - BRONCHOSPASM [None]
  - DYSPNOEA [None]
  - HYPERSENSITIVITY [None]
  - LOSS OF CONSCIOUSNESS [None]
